FAERS Safety Report 13291785 (Version 1)
Quarter: 2017Q1

REPORT INFORMATION
  Report Type: Spontaneous
  Country: US (occurrence: US)
  Receive Date: 20170303
  Receipt Date: 20170303
  Transmission Date: 20170428
  Serious: No
  Sender: FDA-Public Use
  Company Number: US-DEPOMED, INC.-US-2016DEP009279

PATIENT

DRUGS (5)
  1. ANASTROZOLE. [Concomitant]
     Active Substance: ANASTROZOLE
     Indication: BREAST CANCER
     Dosage: 1 MG, QD
     Route: 048
     Dates: start: 201404
  2. GRALISE [Suspect]
     Active Substance: GABAPENTIN
     Indication: NERVE INJURY
     Dosage: TITRATED UP TO 1200 MG DAILY
     Route: 048
     Dates: start: 20160317, end: 201603
  3. GRALISE [Suspect]
     Active Substance: GABAPENTIN
     Dosage: TITRATED DOWN TO 300 MG DAILY
     Route: 048
     Dates: end: 20160330
  4. LIOTHYRONINE SODIUM. [Concomitant]
     Active Substance: LIOTHYRONINE SODIUM
     Indication: THYROID CANCER
     Dosage: 5 ?G, QD
     Route: 048
     Dates: start: 201402
  5. SYNTHROID [Concomitant]
     Active Substance: LEVOTHYROXINE SODIUM
     Indication: THYROID CANCER
     Dosage: 88 ?G, QD
     Route: 048
     Dates: start: 1999

REACTIONS (2)
  - Hyperhidrosis [Not Recovered/Not Resolved]
  - Night sweats [Not Recovered/Not Resolved]

NARRATIVE: CASE EVENT DATE: 20160317
